FAERS Safety Report 6610030-7 (Version None)
Quarter: 2010Q1

REPORT INFORMATION
  Report Type: 
  Country: None (occurrence: None)
  Receive Date: 20100302
  Receipt Date: 20100222
  Transmission Date: 20100710
  Serious: Yes (Other)
  Sender: FDA-Public Use
  Company Number: CHPA2010DE03663

PATIENT
  Sex: Female

DRUGS (1)
  1. NICOTINELL TTS (NCH) [Suspect]
     Indication: SMOKING CESSATION THERAPY
     Dosage: 21 MG, QD
     Route: 062
     Dates: start: 20100214, end: 20100222

REACTIONS (6)
  - ACNE [None]
  - BLOOD PRESSURE DECREASED [None]
  - BURNING SENSATION [None]
  - ERYTHEMA [None]
  - PRURITUS [None]
  - SKIN DISORDER [None]
